FAERS Safety Report 7947062-2 (Version None)
Quarter: 2011Q4

REPORT INFORMATION
  Report Type: 
  Country: None (occurrence: None)
  Receive Date: 20111129
  Receipt Date: 20110725
  Transmission Date: 20120403
  Serious: No
  Sender: FDA-Public Use
  Company Number: US-ASTRAZENECA-2011SE44136

PATIENT
  Age: 81 Year
  Sex: Female

DRUGS (2)
  1. DIVOVAN [Concomitant]
     Indication: HYPERTENSION
  2. VIMOVO [Suspect]
     Indication: OSTEOARTHRITIS
     Route: 048
     Dates: start: 20110720

REACTIONS (6)
  - NERVOUSNESS [None]
  - MUSCLE SPASMS [None]
  - ARRHYTHMIA [None]
  - DIZZINESS [None]
  - FEELING JITTERY [None]
  - BLOOD PRESSURE INCREASED [None]
